FAERS Safety Report 9513313 (Version 1)
Quarter: 2013Q1

REPORT INFORMATION
  Report Type: Spontaneous
  Country: US (occurrence: None)
  Receive Date: 20130305
  Receipt Date: 20130305
  Transmission Date: 20140127
  Serious: Yes (Other)
  Sender: FDA-Public Use
  Company Number: 163-21880-12042476

PATIENT
  Age: 80 Year
  Sex: Female

DRUGS (2)
  1. REVLIMID [Suspect]
     Indication: MYELODYSPLASTIC SYNDROME
     Dosage: QD Q 28DAYS ON DAYS 1-21, PO
     Route: 048
     Dates: start: 20110713, end: 20120410
  2. ARANESP (DARBEPOETIN ALFA) [Concomitant]

REACTIONS (1)
  - Pancytopenia [None]
